FAERS Safety Report 6589103-3 (Version None)
Quarter: 2010Q1

REPORT INFORMATION
  Report Type: 
  Country: None (occurrence: None)
  Receive Date: 20100218
  Receipt Date: 20100212
  Transmission Date: 20100710
  Serious: Yes (Other)
  Sender: FDA-Public Use
  Company Number: NO-EISAI INC.-E2020-06043-SPO-NO

PATIENT
  Age: 87 Year
  Sex: Male

DRUGS (3)
  1. ARICEPT [Suspect]
     Route: 048
  2. ARICEPT [Suspect]
     Dosage: LOWER DOSE
     Route: 048
  3. ARICEPT [Suspect]
     Route: 048

REACTIONS (3)
  - CONFABULATION [None]
  - DELIRIUM [None]
  - HEADACHE [None]
